FAERS Safety Report 5465347-9 (Version None)
Quarter: 2007Q3

REPORT INFORMATION
  Report Type: 
  Country: None (occurrence: None)
  Receive Date: 20070924
  Receipt Date: 20070917
  Transmission Date: 20080115
  Serious: Yes (Life-Threatening, Other)
  Sender: FDA-Public Use
  Company Number: GB-BAYER-200710990BNE

PATIENT
  Age: 82 Year
  Sex: Male

DRUGS (6)
  1. ASPIRIN [Suspect]
     Route: 048
     Dates: start: 20070626, end: 20070907
  2. AMITRIPTYLINE HCL [Suspect]
     Route: 048
     Dates: start: 20070626
  3. PREDNISOLONE [Suspect]
     Route: 048
     Dates: start: 20070809
  4. BECONASE [Concomitant]
  5. CITALOPRAM HYDROBROMIDE [Concomitant]
     Route: 048
     Dates: start: 20070711
  6. LANSOPRAZOLE [Concomitant]
     Route: 048
     Dates: start: 20070829

REACTIONS (2)
  - GASTROINTESTINAL HAEMORRHAGE [None]
  - INTESTINAL PERFORATION [None]
